FAERS Safety Report 13040316 (Version 1)
Quarter: 2016Q4

REPORT INFORMATION
  Report Type: Report from Study
  Country: US (occurrence: US)
  Receive Date: 20161219
  Receipt Date: 20161219
  Transmission Date: 20170207
  Serious: Yes (Other)
  Sender: FDA-Public Use
  Company Number: US-PFIZER INC-2016534139

PATIENT
  Age: 76 Year
  Sex: Female

DRUGS (3)
  1. SUTENT [Suspect]
     Active Substance: SUNITINIB MALATE
     Indication: GASTROINTESTINAL STROMAL TUMOUR
     Dosage: 25 MG, DAILY
     Route: 048
     Dates: start: 2010
  2. SUTENT [Suspect]
     Active Substance: SUNITINIB MALATE
     Dosage: 25 MG, DAILY (2-12.5 MG)
     Dates: start: 20161113
  3. SUTENT [Suspect]
     Active Substance: SUNITINIB MALATE
     Dosage: 25 MG, DAILY (2-12.5 MG)
     Route: 048
     Dates: start: 20100720

REACTIONS (7)
  - Dysgeusia [Unknown]
  - Drug dose omission [Unknown]
  - Rash [Unknown]
  - Skin discolouration [Unknown]
  - Nephropathy [Unknown]
  - Diarrhoea [Not Recovered/Not Resolved]
  - Hair colour changes [Unknown]

NARRATIVE: CASE EVENT DATE: 201008
